FAERS Safety Report 17335706 (Version 3)
Quarter: 2022Q1

REPORT INFORMATION
  Report Type: Spontaneous
  Country: US (occurrence: US)
  Receive Date: 20200128
  Receipt Date: 20220218
  Transmission Date: 20220423
  Serious: No
  Sender: FDA-Public Use
  Company Number: US-MYLANLABS-2020M1006842

PATIENT
  Age: 12 Year
  Sex: Female

DRUGS (3)
  1. CYSTAGON [Suspect]
     Active Substance: CYSTEAMINE BITARTRATE
     Indication: Urethritis chlamydial
     Dosage: 450 MILLIGRAM, Q6H (9 CAPSULE)
     Route: 048
     Dates: start: 20080828
  2. CYSTAGON [Suspect]
     Active Substance: CYSTEAMINE BITARTRATE
     Indication: Cystinosis
     Dosage: 450 UNK
     Route: 048
  3. CYSTAGON [Suspect]
     Active Substance: CYSTEAMINE BITARTRATE
     Dosage: 600 MILLIGRAM, Q6H
     Route: 048
     Dates: start: 200808

REACTIONS (1)
  - Pain [Unknown]

NARRATIVE: CASE EVENT DATE: 20200114
